FAERS Safety Report 5961068-4 (Version None)
Quarter: 2008Q4

REPORT INFORMATION
  Report Type: 
  Country: None (occurrence: None)
  Receive Date: 20081121
  Receipt Date: 20081119
  Transmission Date: 20090506
  Serious: Yes (Hospitalization, Other)
  Sender: FDA-Public Use
  Company Number: GB-TEVA-179862ISR

PATIENT
  Age: 75 Year
  Sex: Female

DRUGS (1)
  1. DICLOFENAC SODIUM [Suspect]

REACTIONS (7)
  - ABDOMINAL DISTENSION [None]
  - DUODENAL STENOSIS [None]
  - DUODENAL ULCER [None]
  - GASTROINTESTINAL DISORDER [None]
  - GASTROINTESTINAL OBSTRUCTION [None]
  - HYPOALBUMINAEMIA [None]
  - IRON DEFICIENCY ANAEMIA [None]
